FAERS Safety Report 4352269-X (Version None)
Quarter: 2004Q2

REPORT INFORMATION
  Report Type: 
  Country: None (occurrence: None)
  Receive Date: 20040420
  Receipt Date: 20040311
  Transmission Date: 20050107
  Serious: Yes (Hospitalization)
  Sender: FDA-Public Use
  Company Number: 2004UW04060

PATIENT
  Sex: Male

DRUGS (2)
  1. PRILOSEC [Suspect]
     Indication: DYSPEPSIA
     Dosage: 1 DF QD PO
     Route: 048
     Dates: start: 20040221
  2. WARFARIN SODIUM [Concomitant]

REACTIONS (1)
  - INTERNATIONAL NORMALISED RATIO INCREASED [None]
